FAERS Safety Report 19788545 (Version 1)
Quarter: 2021Q3

REPORT INFORMATION
  Report Type: Spontaneous
  Country: CA (occurrence: CA)
  Receive Date: 20210903
  Receipt Date: 20210903
  Transmission Date: 20211014
  Serious: Yes (Hospitalization)
  Sender: FDA-Public Use
  Company Number: CA-009507513-2108CAN006943

PATIENT
  Age: 53 Year
  Sex: Male

DRUGS (2)
  1. TEMODAL [Suspect]
     Active Substance: TEMOZOLOMIDE
     Indication: NEUROENDOCRINE CARCINOMA
     Dosage: 150 MG/M^2 GIVEN ORALLY DAILY FOR 5 DAYS OF A PLANNED 28?DAY CYCLE
     Route: 048
     Dates: start: 201809, end: 2018
  2. TEMODAL [Suspect]
     Active Substance: TEMOZOLOMIDE
     Indication: PINEAL PARENCHYMAL NEOPLASM MALIGNANT

REACTIONS (3)
  - Toxicity to various agents [Recovered/Resolved]
  - Drug intolerance [Recovered/Resolved]
  - Product use in unapproved indication [Unknown]

NARRATIVE: CASE EVENT DATE: 2018
